FAERS Safety Report 8570515 (Version 3)
Quarter: 2013Q3

REPORT INFORMATION
  Report Type: Report from Study
  Country: MX (occurrence: US)
  Receive Date: 20120521
  Receipt Date: 20130930
  Transmission Date: 20140515
  Serious: Yes (Death, Life-Threatening)
  Sender: FDA-Public Use
  Company Number: MX-CELGENEUS-163-C5013-11102449

PATIENT
  Age: 54 Year
  Sex: Male
  Weight: 152 kg

DRUGS (17)
  1. PLACEBO FOR CC-5013 [Suspect]
     Indication: PROSTATE CANCER
     Dosage: 25 MILLIGRAM
     Route: 048
     Dates: start: 20110616, end: 20110620
  2. PLACEBO FOR CC-5013 [Suspect]
     Dosage: 25 MILLIGRAM
     Route: 048
     Dates: start: 20110929, end: 201110
  3. DOCETAXEL [Suspect]
     Indication: PROSTATE CANCER
     Dosage: 195
     Route: 065
     Dates: start: 20110616, end: 20110620
  4. DOCETAXEL [Suspect]
     Dosage: 195
     Route: 065
     Dates: start: 20110929, end: 20111003
  5. PREDNISONE [Suspect]
     Indication: PROSTATE CANCER
     Dosage: 10 MILLIGRAM
     Route: 065
     Dates: start: 20110616, end: 20110620
  6. PREDNISONE [Suspect]
     Dosage: 10 MILLIGRAM
     Route: 065
     Dates: start: 20110929, end: 20111003
  7. RANITIDINE [Concomitant]
     Indication: GASTRITIS PROPHYLAXIS
     Route: 041
     Dates: start: 20110620, end: 20110620
  8. RANITIDINE [Concomitant]
     Route: 041
     Dates: start: 20110708, end: 20110708
  9. METOCLOPRAMIDE [Concomitant]
     Indication: PROPHYLAXIS OF NAUSEA AND VOMITING
     Route: 041
     Dates: start: 20110620, end: 20110620
  10. METOCLOPRAMIDE [Concomitant]
     Indication: PROPHYLAXIS OF NAUSEA AND VOMITING
     Route: 041
     Dates: start: 20110801, end: 20110801
  11. DEXAMETHASONE [Concomitant]
     Indication: ALLERGY PROPHYLAXIS
     Route: 041
     Dates: start: 20110620, end: 20110620
  12. ONDANSETRON [Concomitant]
     Indication: PROPHYLAXIS OF NAUSEA AND VOMITING
     Route: 041
     Dates: start: 20110801, end: 20110801
  13. ONDANSETRON [Concomitant]
     Indication: PROPHYLAXIS OF NAUSEA AND VOMITING
  14. CEFALEXIN [Concomitant]
     Indication: THROMBOPHLEBITIS SUPERFICIAL
     Dosage: 2000 MILLIGRAM
     Route: 048
     Dates: start: 20110902, end: 20110909
  15. DICLOFENAC [Concomitant]
     Indication: THROMBOPHLEBITIS SUPERFICIAL
     Dosage: 300 MILLIGRAM
     Route: 048
     Dates: start: 20110902, end: 20110905
  16. PARACETAMOL [Concomitant]
     Indication: THROMBOPHLEBITIS SUPERFICIAL
     Dosage: 1500 MILLIGRAM
     Route: 048
     Dates: start: 20110902, end: 20110905
  17. BECLOTRIM [Concomitant]
     Indication: THROMBOPHLEBITIS SUPERFICIAL
     Route: 062
     Dates: start: 20110902, end: 20110912

REACTIONS (3)
  - Obesity [Fatal]
  - Myocardial infarction [Fatal]
  - Pneumonia [Not Recovered/Not Resolved]
